FAERS Safety Report 25038997 (Version 1)
Quarter: 2025Q1

REPORT INFORMATION
  Report Type: Spontaneous
  Country: TR (occurrence: TR)
  Receive Date: 20250305
  Receipt Date: 20250305
  Transmission Date: 20250409
  Serious: Yes (Hospitalization, Other)
  Sender: FDC LIMITED
  Company Number: TR-FDC-2025TRLIT00077

PATIENT
  Age: 52 Year
  Sex: Female

DRUGS (2)
  1. CIPROFLOXACIN [Suspect]
     Active Substance: CIPROFLOXACIN
     Indication: Urinary tract infection
     Route: 065
  2. LITHIUM [Concomitant]
     Active Substance: LITHIUM
     Indication: Bipolar disorder
     Route: 065

REACTIONS (3)
  - Delirium [Recovering/Resolving]
  - Mania [Recovering/Resolving]
  - Product use in unapproved indication [Unknown]
